FAERS Safety Report 11215518 (Version 1)
Quarter: 2015Q2

REPORT INFORMATION
  Report Type: Spontaneous
  Country: US (occurrence: None)
  Receive Date: 20150623
  Receipt Date: 20150623
  Transmission Date: 20150821
  Serious: No
  Sender: FDA-Public Use
  Company Number: None

PATIENT
  Age: 60 Year
  Sex: Female

DRUGS (1)
  1. HUMIRA [Suspect]
     Active Substance: ADALIMUMAB
     Dosage: 40MG  QOW SQ
     Route: 058
     Dates: start: 20130731, end: 20150515

REACTIONS (3)
  - Systemic lupus erythematosus [None]
  - Liver function test abnormal [None]
  - Therapy cessation [None]

NARRATIVE: CASE EVENT DATE: 20150515
